FAERS Safety Report 9045847 (Version 1)
Quarter: 2013Q1

REPORT INFORMATION
  Report Type: Spontaneous
  Country: US (occurrence: US)
  Receive Date: 20130201
  Receipt Date: 20130201
  Transmission Date: 20140127
  Serious: No
  Sender: FDA-Public Use
  Company Number: US-009507513-1301USA010492

PATIENT
  Sex: Male

DRUGS (4)
  1. PEGINTRON [Suspect]
     Indication: HEPATITIS C
     Dosage: UNK
     Dates: start: 20040924, end: 20050114
  2. RIBAVIRIN [Suspect]
     Indication: HEPATITIS C
     Dosage: UNK
     Dates: start: 19970606, end: 19980605
  3. INTERFERON ALFA-2B [Suspect]
     Indication: HEPATITIS C
     Dosage: UNK
     Dates: start: 19910104, end: 19910607
  4. INTERFERON ALFA-2B [Suspect]
     Dosage: UNK
     Dates: start: 19970606, end: 19980605

REACTIONS (8)
  - Mental status changes [Unknown]
  - Hypertension [Unknown]
  - Anxiety [Unknown]
  - Irritability [Unknown]
  - Therapeutic response decreased [Unknown]
  - Drug ineffective [Unknown]
  - Drug ineffective [Unknown]
  - Therapeutic response decreased [Unknown]
